FAERS Safety Report 21816243 (Version 1)
Quarter: 2023Q1

REPORT INFORMATION
  Report Type: Spontaneous
  Country: US (occurrence: None)
  Receive Date: 20230103
  Receipt Date: 20230103
  Transmission Date: 20230417
  Serious: Yes (Other)
  Sender: FDA-Public Use
  Company Number: None

PATIENT
  Sex: Female

DRUGS (4)
  1. ENBREL [Suspect]
     Active Substance: ETANERCEPT
     Indication: Rheumatoid arthritis
     Dosage: 50 MG/ML SUBCUTANEOUS??INJECT 1 PEN UNDER THE SKIN (SUBCUTANEOUS INJECTION) ONCE A WEEK
     Route: 058
     Dates: start: 20171004
  2. CELEBREX [Concomitant]
     Active Substance: CELECOXIB
  3. MULTIVITAMIN [Concomitant]
  4. OTREXUP [Concomitant]
     Active Substance: METHOTREXATE

REACTIONS (1)
  - Intentional dose omission [None]
